FAERS Safety Report 8300450-7 (Version None)
Quarter: 2012Q2

REPORT INFORMATION
  Report Type: 
  Country: None (occurrence: None)
  Receive Date: 20120417
  Receipt Date: 20120402
  Transmission Date: 20120825
  Serious: Yes (Hospitalization)
  Sender: FDA-Public Use
  Company Number: 2012P1011350

PATIENT
  Sex: Female

DRUGS (6)
  1. VITAMIN D [Concomitant]
  2. WARFARIN SODIUM [Suspect]
     Indication: THROMBOSIS
     Dates: start: 20020701, end: 20030401
  3. WARFARIN SODIUM [Suspect]
     Indication: THROMBOSIS
     Dates: start: 20120101, end: 20120321
  4. WARFARIN SODIUM [Suspect]
     Indication: THROMBOSIS
     Dates: start: 20080701, end: 20111201
  5. PREDNISONE [Concomitant]
  6. NORVASC [Concomitant]

REACTIONS (7)
  - PHARYNGEAL OEDEMA [None]
  - THROMBOSIS [None]
  - PARAESTHESIA [None]
  - ASTHMA [None]
  - PRODUCT SUBSTITUTION ISSUE [None]
  - DYSPNOEA [None]
  - CONDITION AGGRAVATED [None]
